FAERS Safety Report 19711530 (Version 1)
Quarter: 2021Q3

REPORT INFORMATION
  Report Type: Spontaneous
  Country: US (occurrence: US)
  Receive Date: 20210816
  Receipt Date: 20210816
  Transmission Date: 20211014
  Serious: No
  Sender: FDA-Public Use
  Company Number: US-TG THERAPEUTICS INC.-TGT001981

PATIENT
  Sex: Male

DRUGS (2)
  1. CORICIDIN [OXYMETAZOLINE HYDROCHLORIDE] [Concomitant]
     Active Substance: OXYMETAZOLINE HYDROCHLORIDE
     Indication: HYPERSENSITIVITY
  2. UKONIQ [Suspect]
     Active Substance: UMBRALISIB TOSYLATE
     Route: 048

REACTIONS (2)
  - Drug interaction [Unknown]
  - Rhinorrhoea [Unknown]

NARRATIVE: CASE EVENT DATE: 20210601
